FAERS Safety Report 7087053-X (Version None)
Quarter: 2010Q4

REPORT INFORMATION
  Report Type: 
  Country: None (occurrence: None)
  Receive Date: 20101106
  Receipt Date: 20101027
  Transmission Date: 20110411
  Serious: Yes (Other)
  Sender: FDA-Public Use
  Company Number: US-WYE-H18413310

PATIENT
  Age: 83 Year
  Sex: Female
  Weight: 82.63 kg

DRUGS (4)
  1. ADVIL [Suspect]
     Indication: PAIN
     Route: 048
     Dates: start: 20101026, end: 20101026
  2. ADVIL [Suspect]
     Indication: TOOTH EXTRACTION
  3. PARACETAMOL [Concomitant]
  4. BENZOCAINE [Suspect]
     Indication: TOOTH EXTRACTION
     Dosage: UNKNOWN
     Route: 065
     Dates: start: 20101026, end: 20101026

REACTIONS (3)
  - ASTHENIA [None]
  - HYPERSENSITIVITY [None]
  - URTICARIA [None]
